FAERS Safety Report 6326962-3 (Version None)
Quarter: 2009Q3

REPORT INFORMATION
  Report Type: 
  Country: None (occurrence: None)
  Receive Date: 20090825
  Receipt Date: 20090817
  Transmission Date: 20100115
  Serious: Yes (Hospitalization)
  Sender: FDA-Public Use
  Company Number: PHHO2009DE05790

PATIENT
  Sex: Male
  Weight: 71 kg

DRUGS (27)
  1. RAD 666 / RAD 001A [Suspect]
     Indication: CARCINOID TUMOUR
     Dosage: 5 MG DAILY
     Route: 048
     Dates: start: 20080301, end: 20090521
  2. PLACEBO COMP-PLA+ [Interacting]
     Indication: CARCINOID TUMOUR
     Dosage: DOUBLE BLIND
     Route: 048
     Dates: start: 20071219, end: 20080423
  3. ARCOXIA [Interacting]
     Indication: OSTEOARTHRITIS
     Dosage: 90 MG, P.O.
     Route: 048
     Dates: start: 20090415, end: 20090430
  4. SANDOSTATIN LAR [Concomitant]
     Indication: CARCINOID TUMOUR
     Dosage: DOUBLE-BLIND
     Route: 048
  5. DOXAZOSIN [Concomitant]
     Indication: HYPERTENSION
  6. AZUPROSTAT [Concomitant]
     Indication: BENIGN PROSTATIC HYPERPLASIA
  7. MAGNESIUM [Concomitant]
     Indication: GUILLAIN-BARRE SYNDROME
  8. TEMAZEPAM [Concomitant]
     Indication: INSOMNIA
  9. QUANTALAN [Concomitant]
     Indication: CHOLECYSTECTOMY
  10. LOPERAMIDE HYDROCHLORIDE [Concomitant]
     Indication: DIARRHOEA
  11. ORALPAEDON [Concomitant]
     Indication: DIARRHOEA
  12. LORZAAR [Concomitant]
     Indication: HYPERTENSION
  13. VICKS VAPOSTEAM LIQUID MEDICATION [Concomitant]
     Indication: NASOPHARYNGITIS
  14. ALFASON [Concomitant]
     Indication: RASH
  15. DICLOFENAC [Concomitant]
     Indication: BACK PAIN
  16. VITAMIN B-12 [Concomitant]
     Indication: VITAMIN B12 DEFICIENCY
  17. NEPRESOL [Concomitant]
     Indication: HYPERTENSION
  18. CREON [Concomitant]
     Indication: DIARRHOEA
  19. NOVALGIN [Concomitant]
     Indication: ARTHRALGIA
  20. DELIX [Concomitant]
     Indication: HYPERTENSION
  21. DIOVAN HCT [Concomitant]
     Indication: HYPERTENSION
  22. PREDNISOLONE [Concomitant]
     Indication: TONGUE OEDEMA
  23. PREDNISOLONE [Concomitant]
     Indication: TONGUE OEDEMA
  24. TALCID [Concomitant]
     Indication: ABDOMINAL PAIN
  25. TAVEGYL [Concomitant]
     Indication: ANGIOEDEMA
  26. RANITIDINE HCL [Concomitant]
     Indication: ANGIOEDEMA
  27. LORZAAR PLUS [Concomitant]
     Indication: HYPERTENSION

REACTIONS (29)
  - AORTIC VALVE INCOMPETENCE [None]
  - ARTHRALGIA [None]
  - BLOOD CALCIUM DECREASED [None]
  - BLOOD CREATININE INCREASED [None]
  - BLOOD PHOSPHORUS INCREASED [None]
  - DECREASED APPETITE [None]
  - DIARRHOEA [None]
  - DIASTOLIC DYSFUNCTION [None]
  - DRUG INTERACTION [None]
  - DRUG TOXICITY [None]
  - FATIGUE [None]
  - HYPERPARATHYROIDISM SECONDARY [None]
  - HYPERTENSIVE HEART DISEASE [None]
  - HYPERTENSIVE NEPHROPATHY [None]
  - HYPOCALCAEMIA [None]
  - HYPOKALAEMIA [None]
  - METABOLIC ACIDOSIS [None]
  - MUSCLE SPASMS [None]
  - NEPHROGENIC ANAEMIA [None]
  - PERFORMANCE STATUS DECREASED [None]
  - RASH PRURITIC [None]
  - RENAL FAILURE ACUTE [None]
  - RENAL FAILURE CHRONIC [None]
  - RENAL TUBULAR DISORDER [None]
  - RETICULOCYTE COUNT DECREASED [None]
  - RETINOPATHY HYPERTENSIVE [None]
  - TRICUSPID VALVE INCOMPETENCE [None]
  - VENTRICULAR HYPERTROPHY [None]
  - WEIGHT DECREASED [None]
